FAERS Safety Report 8965668 (Version 1)
Quarter: 2012Q4

REPORT INFORMATION
  Report Type: Spontaneous
  Country: GB (occurrence: None)
  Receive Date: 20121205
  Receipt Date: 20121205
  Transmission Date: 20130627
  Serious: Yes (Death, Congenital Anomaly, Other)
  Sender: FDA-Public Use
  Company Number: AUR-APL-2012-05133

PATIENT
  Age: 16 Day
  Sex: Female
  Weight: 3.41 kg

DRUGS (6)
  1. ZIDOVUDINE [Suspect]
     Route: 064
     Dates: start: 20090318
  2. ISENTRESS [Suspect]
     Route: 064
     Dates: start: 20090310
  3. ISENTRESS [Suspect]
     Dosage: (400 mg, 2 in 1 d)
     Route: 064
     Dates: start: 20090319
  4. NORVIR [Suspect]
     Route: 064
     Dates: start: 20090310
  5. PREZISTA [Suspect]
     Dosage: (600 mg, 2 in 1 d)
     Route: 064
     Dates: start: 20090310
  6. TRUVADA [Suspect]
     Route: 064

REACTIONS (10)
  - Caesarean section [None]
  - Congenital aortic valve stenosis [None]
  - Cardiac arrest [None]
  - Apnoea [None]
  - Sudden infant death syndrome [None]
  - Complication of delivery [None]
  - Congenital pulmonary valve disorder [None]
  - Ventricular hypertrophy [None]
  - Foetal exposure during pregnancy [None]
  - Large for dates baby [None]
